FAERS Safety Report 13824139 (Version 1)
Quarter: 2017Q3

REPORT INFORMATION
  Report Type: Spontaneous
  Country: US (occurrence: US)
  Receive Date: 20170802
  Receipt Date: 20170802
  Transmission Date: 20171127
  Serious: Yes (Other)
  Sender: FDA-Public Use
  Company Number: US-BAYER-2017-141506

PATIENT
  Age: 65 Year
  Sex: Female

DRUGS (3)
  1. VITAMINS NOS [Concomitant]
     Active Substance: VITAMINS
     Dosage: 1 DF, QD
  2. BAYER LOW DOSE [Suspect]
     Active Substance: ASPIRIN
     Indication: PROPHYLAXIS
     Dosage: 1 DF, QD
     Dates: start: 2017
  3. CENTRUM [MINERALS NOS,VITAMINS NOS] [Concomitant]

REACTIONS (2)
  - Product use issue [Unknown]
  - Choking [Unknown]

NARRATIVE: CASE EVENT DATE: 2017
